FAERS Safety Report 10376429 (Version 1)
Quarter: 2014Q3

REPORT INFORMATION
  Report Type: Spontaneous
  Country: US (occurrence: US)
  Receive Date: 20140811
  Receipt Date: 20140811
  Transmission Date: 20150326
  Serious: No
  Sender: FDA-Public Use
  Company Number: US-PFIZER INC-2014218845

PATIENT
  Sex: Female

DRUGS (1)
  1. AROMASIN [Suspect]
     Active Substance: EXEMESTANE
     Indication: BREAST CANCER
     Dosage: UNK

REACTIONS (5)
  - Breast cancer [Unknown]
  - Metastases to central nervous system [Unknown]
  - Disease progression [Unknown]
  - Metastases to lung [Unknown]
  - Metastases to spine [Unknown]

NARRATIVE: CASE EVENT DATE: 201407
